FAERS Safety Report 6679692-2 (Version None)
Quarter: 2010Q2

REPORT INFORMATION
  Report Type: 
  Country: None (occurrence: None)
  Receive Date: 20100409
  Receipt Date: 20100326
  Transmission Date: 20101027
  Serious: Yes (Hospitalization)
  Sender: FDA-Public Use
  Company Number: 233134J10USA

PATIENT
  Age: 55 Year
  Sex: Female

DRUGS (2)
  1. REBIF [Suspect]
     Dosage: 44  MG, 3 IN 1 WK, SUBCUTANEOUS
     Route: 058
     Dates: start: 20080924
  2. COUMADIN [Suspect]
     Dates: start: 20080101

REACTIONS (4)
  - BLEEDING TIME ABNORMAL [None]
  - GROIN PAIN [None]
  - LIMB DISCOMFORT [None]
  - WEIGHT INCREASED [None]
